FAERS Safety Report 21203626 (Version 2)
Quarter: 2022Q3

REPORT INFORMATION
  Report Type: Report from Study
  Country: CA (occurrence: CA)
  Receive Date: 20220811
  Receipt Date: 20220812
  Transmission Date: 20221027
  Serious: Yes (Other)
  Sender: FDA-Public Use
  Company Number: CA-HLS-202201450

PATIENT
  Age: 25 Year
  Sex: Female

DRUGS (16)
  1. CLOZARIL [Suspect]
     Active Substance: CLOZAPINE
     Indication: Product used for unknown indication
     Dosage: TAKE 3 TABLETS (=300MG) ONCE PER DAY AT BEDTIME
     Route: 048
     Dates: start: 20191231
  2. UNSPECIFIED INGREDIENT [Concomitant]
     Active Substance: UNSPECIFIED INGREDIENT
     Indication: Product used for unknown indication
     Dosage: TAKE 2 CAPSULES (80 MG) PER DAY IN THE MORNING
     Route: 065
  3. UNSPECIFIED INGREDIENT [Concomitant]
     Active Substance: UNSPECIFIED INGREDIENT
     Indication: Product used for unknown indication
     Dosage: TAKE 2 TABLETS TWICE A DAY MORNING AND EVENING
     Route: 065
  4. UNSPECIFIED INGREDIENT [Concomitant]
     Active Substance: UNSPECIFIED INGREDIENT
     Indication: Blood pressure measurement
     Dosage: TAKE 1 TABLET PER DAY WITH LUNCH REGULARLY (PRESSURE)
     Route: 065
  5. UNSPECIFIED INGREDIENT [Concomitant]
     Active Substance: UNSPECIFIED INGREDIENT
     Indication: Product used for unknown indication
     Dosage: TAKE 3 TABLETS AT BEDTIME FOR 9 DAYS THEN 2 TABLETS AT BEDTIME FOR 7 DAYS THEN 1 TABLET AT BEDTIME F
     Route: 065
  6. UNSPECIFIED INGREDIENT [Concomitant]
     Active Substance: UNSPECIFIED INGREDIENT
     Indication: Product used for unknown indication
     Dosage: TAKE 1 TABLET ONCE PER DAY AT BEDTIME (?WITH TABLET OF 25 MG)?FOR 3 WEEKS FROM 20 JULY TO 11 AUGUST
     Route: 065
  7. UNSPECIFIED INGREDIENT [Concomitant]
     Active Substance: UNSPECIFIED INGREDIENT
     Indication: Pyrexia
     Dosage: TAKE 1 TO 2 TABLETS AT 6 H AS NEEDED MAXIMUM?8 TABLETS PER DAY (PAIN FEVER)
     Route: 065
  8. UNSPECIFIED INGREDIENT [Concomitant]
     Active Substance: UNSPECIFIED INGREDIENT
     Indication: Pain
     Dosage: TAKE 1 TO 2 TABLETS AT 6 H AS NEEDED MAXIMUM?8 TABLETS PER DAY (PAIN FEVER)
     Route: 065
  9. UNSPECIFIED INGREDIENT [Concomitant]
     Active Substance: UNSPECIFIED INGREDIENT
     Indication: Product used for unknown indication
     Dosage: CHEW 1 GUM AS NEEDED UP TO A MAXIMUM OF 20 PIECES PER DAY (NICOTINE)
     Route: 065
  10. UNSPECIFIED INGREDIENT [Concomitant]
     Active Substance: UNSPECIFIED INGREDIENT
     Indication: Product used for unknown indication
     Dosage: SUBCUTANEOUS INJECTION INTO THE ABDOMINAL WALL?ONCE A DAY FOR 8 DAYS (SURGERY EXPECTED IN JULY?2022)
     Route: 065
  11. UNSPECIFIED INGREDIENT [Concomitant]
     Active Substance: UNSPECIFIED INGREDIENT
     Indication: Product used for unknown indication
     Dosage: 1 TABLET 4 TIMES A DAY AFTER MEAL AND AT BEDTIME FOR 5 DAYS
     Route: 065
  12. UNSPECIFIED INGREDIENT [Concomitant]
     Active Substance: UNSPECIFIED INGREDIENT
     Indication: Product used for unknown indication
     Dosage: 2 TABLETS AT 6 HOURS IF NEEDED
     Route: 065
  13. UNSPECIFIED INGREDIENT [Concomitant]
     Active Substance: UNSPECIFIED INGREDIENT
     Indication: Product used for unknown indication
     Dosage: TAKE 1 TABLET PER DAY AT BEDTIME AFTER 12 AUGUST 2022 (STEP 2 OF 2)
     Route: 065
  14. UNSPECIFIED INGREDIENT [Concomitant]
     Active Substance: UNSPECIFIED INGREDIENT
     Indication: Haemorrhoids
     Dosage: APPLY ON HEMORRHOIDS MORNING AND EVENING IF REQUIRED, USAGE MAXIMUM 7 DAYS PER MONTH
     Route: 065
  15. UNSPECIFIED INGREDIENT [Concomitant]
     Active Substance: UNSPECIFIED INGREDIENT
     Indication: Product used for unknown indication
     Dosage: PERFORM 1 INTRAMUSCULAR INJECTION EVERY 28 DAYS?IN THE LEFT DELTOID **NEXT INJECTION 17 AUGUST**
     Route: 065
  16. UNSPECIFIED INGREDIENT [Concomitant]
     Active Substance: UNSPECIFIED INGREDIENT
     Indication: Product used for unknown indication
     Dosage: TAKE 1 TABLET TWICE A DAY MORNING AND EVENING FOR 1 WEEK THEN DISCONTINUE?**FROM 20 JULY TO 26 JULY
     Route: 065

REACTIONS (25)
  - COVID-19 [Unknown]
  - Differential white blood cell count [Unknown]
  - Platelet count increased [Unknown]
  - Leukocytosis [Unknown]
  - Leukocytosis [Unknown]
  - Leukocytosis [Unknown]
  - Leukocytosis [Unknown]
  - Leukocytosis [Unknown]
  - Leukocytosis [Unknown]
  - Leukocytosis [Unknown]
  - Leukocytosis [Unknown]
  - Leukocytosis [Unknown]
  - Differential white blood cell count abnormal [Unknown]
  - Monocytosis [Unknown]
  - Monocytosis [Unknown]
  - Neutrophilia [Unknown]
  - Differential white blood cell count abnormal [Unknown]
  - Neutrophilia [Unknown]
  - Neutrophilia [Unknown]
  - Neutrophilia [Unknown]
  - Neutrophilia [Unknown]
  - Neutrophilia [Unknown]
  - Neutrophilia [Unknown]
  - Thrombocytosis [Unknown]
  - Vaginoplasty [Unknown]

NARRATIVE: CASE EVENT DATE: 20211020
